FAERS Safety Report 14272819 (Version 1)
Quarter: 2017Q4

REPORT INFORMATION
  Report Type: Spontaneous
  Country: US (occurrence: None)
  Receive Date: 20171212
  Receipt Date: 20171212
  Transmission Date: 20180321
  Serious: Yes (Hospitalization)
  Sender: FDA-Public Use
  Company Number: None

PATIENT
  Age: 4 Year
  Sex: Female
  Weight: 17.2 kg

DRUGS (9)
  1. DAUNORUBICIN [Suspect]
     Active Substance: DAUNORUBICIN
     Dates: end: 20170412
  2. VINCRISTINE SULFATE. [Suspect]
     Active Substance: VINCRISTINE SULFATE
     Dates: end: 20170927
  3. ONCASPAR [Suspect]
     Active Substance: PEGASPARGASE
     Dates: end: 20171115
  4. CYCLOPHOSPHAMIDE. [Suspect]
     Active Substance: CYCLOPHOSPHAMIDE
     Dates: end: 20171101
  5. THIOGUANINE (6-TG) [Suspect]
     Active Substance: THIOGUANINE ANHYDROUS
     Dates: end: 20171114
  6. DOXORUBICIN HYDROCHLORIDE. [Suspect]
     Active Substance: DOXORUBICIN HYDROCHLORIDE
     Dates: end: 20171011
  7. METHOTREXATE. [Suspect]
     Active Substance: METHOTREXATE
     Dates: end: 20171108
  8. DEXAMETHASONE. [Suspect]
     Active Substance: DEXAMETHASONE
     Dates: end: 20171018
  9. CYTARABINE. [Suspect]
     Active Substance: CYTARABINE
     Dates: end: 20171108

REACTIONS (8)
  - Abdominal pain [None]
  - Hypomagnesaemia [None]
  - Constipation [None]
  - Hyperphosphataemia [None]
  - Klebsiella test positive [None]
  - Hyponatraemia [None]
  - Blood culture positive [None]
  - Febrile neutropenia [None]

NARRATIVE: CASE EVENT DATE: 20171102
